FAERS Safety Report 7483020-2 (Version None)
Quarter: 2011Q2

REPORT INFORMATION
  Report Type: 
  Country: None (occurrence: None)
  Receive Date: 20110516
  Receipt Date: 20110508
  Transmission Date: 20111010
  Serious: Yes (Hospitalization)
  Sender: FDA-Public Use
  Company Number: DE-PFIZER INC-2011102414

PATIENT
  Age: 53 Year
  Sex: Male
  Weight: 90 kg

DRUGS (5)
  1. CLARITHROMYCIN [Suspect]
     Dosage: UNK
     Route: 048
  2. DIMENHYDRINATE [Suspect]
     Dosage: UNK
     Route: 048
  3. BISOPROLOL FUMARATE [Suspect]
     Dosage: 300 MG, UNK
     Route: 048
  4. SIMVASTATIN [Suspect]
     Dosage: 10000 MG, UNK
     Route: 048
  5. IBUPROFEN [Suspect]
     Dosage: 6000 MG, UNK
     Route: 048

REACTIONS (2)
  - SUICIDE ATTEMPT [None]
  - SOMNOLENCE [None]
